FAERS Safety Report 4956077-8 (Version None)
Quarter: 2006Q1

REPORT INFORMATION
  Report Type: 
  Country: None (occurrence: None)
  Receive Date: 20060328
  Receipt Date: 20051208
  Transmission Date: 20060701
  Serious: Yes (Hospitalization)
  Sender: FDA-Public Use
  Company Number: US-MERCK-0512USA01594

PATIENT
  Age: 63 Year
  Sex: Male
  Weight: 80 kg

DRUGS (24)
  1. VIOXX [Suspect]
     Indication: OSTEOARTHRITIS
     Route: 048
     Dates: start: 19990810, end: 20041001
  2. GLUCOPHAGE [Concomitant]
     Route: 065
  3. GLYBURIDE [Concomitant]
     Route: 065
  4. GLUCOTROL [Concomitant]
     Route: 065
  5. ISOSORBIDE [Concomitant]
     Route: 065
     Dates: start: 20000101
  6. ACARBOSE [Concomitant]
     Route: 065
  7. ACTOS [Concomitant]
     Route: 065
  8. ASPIRIN [Concomitant]
     Route: 065
     Dates: start: 20000101
  9. ADVIL [Concomitant]
     Route: 065
     Dates: start: 20020101
  10. CARDIZEM [Concomitant]
     Route: 065
     Dates: start: 19890101
  11. DESYREL [Concomitant]
     Route: 065
  12. LIPITOR [Concomitant]
     Route: 065
     Dates: start: 20000101
  13. LORAZEPAM [Concomitant]
     Route: 065
  14. MELLARIL [Concomitant]
     Route: 065
  15. NIACIN [Concomitant]
     Route: 065
  16. NITRODERM [Concomitant]
     Route: 065
     Dates: start: 19890101, end: 20020301
  17. NORVASC [Concomitant]
     Route: 065
     Dates: start: 19890101
  18. PROZAC [Concomitant]
     Route: 065
  19. RISPERDAL [Concomitant]
     Route: 065
  20. SINEQUAN [Concomitant]
     Route: 065
  21. TRANXENE [Concomitant]
     Route: 065
  22. LISINOPRIL [Concomitant]
     Route: 065
     Dates: start: 19890101
  23. METOPROLOL [Concomitant]
     Route: 065
  24. QUESTRAN [Concomitant]
     Route: 065
     Dates: start: 19890101, end: 20020301

REACTIONS (3)
  - CHRONIC OBSTRUCTIVE PULMONARY DISEASE [None]
  - CORONARY ARTERY DISEASE [None]
  - MYOCARDIAL INFARCTION [None]
